FAERS Safety Report 9452381 (Version 1)
Quarter: 2013Q3

REPORT INFORMATION
  Report Type: Spontaneous
  Country: ES (occurrence: ES)
  Receive Date: 20130812
  Receipt Date: 20130812
  Transmission Date: 20140515
  Serious: Yes (Hospitalization, Other)
  Sender: FDA-Public Use
  Company Number: ES-ACCORD-018863

PATIENT
  Age: 40 Year
  Sex: Female

DRUGS (3)
  1. GEMCITABINE [Suspect]
     Indication: OVARIAN CANCER METASTATIC
  2. CARBOPLATIN [Suspect]
     Indication: OVARIAN EPITHELIAL CANCER
  3. CISPLATIN [Concomitant]
     Indication: OVARIAN CANCER METASTATIC

REACTIONS (3)
  - Hypersensitivity [Unknown]
  - Cutaneous vasculitis [Recovered/Resolved]
  - Off label use [Unknown]
